FAERS Safety Report 4582160-5 (Version None)
Quarter: 2005Q1

REPORT INFORMATION
  Report Type: 
  Country: None (occurrence: None)
  Receive Date: 20050119
  Receipt Date: 20040223
  Transmission Date: 20050727
  Serious: Yes (Hospitalization)
  Sender: FDA-Public Use
  Company Number: A03200400540

PATIENT
  Age: 80 Year
  Sex: Female
  Weight: 74.8435 kg

DRUGS (6)
  1. PLAVIX [Suspect]
     Indication: ISCHAEMIC STROKE
     Dosage: 75 MG QD - ORAL
     Route: 048
     Dates: start: 19991001, end: 20031221
  2. ACETYLSALICYLIC ACID [Concomitant]
  3. ATENOLOL [Concomitant]
  4. LEVOTHYROXINE SODIUM [Concomitant]
  5. TRAVOPROST [Concomitant]
  6. TIMOLOL MALEATE [Concomitant]

REACTIONS (7)
  - ANOREXIA [None]
  - BLOOD POTASSIUM DECREASED [None]
  - CONSTIPATION [None]
  - DIVERTICULUM INTESTINAL HAEMORRHAGIC [None]
  - FEELING ABNORMAL [None]
  - HAEMATEMESIS [None]
  - HAEMORRHOIDAL HAEMORRHAGE [None]
